FAERS Safety Report 21314502 (Version 1)
Quarter: 2022Q3

REPORT INFORMATION
  Report Type: Spontaneous
  Country: US (occurrence: US)
  Receive Date: 20220909
  Receipt Date: 20220909
  Transmission Date: 20221026
  Serious: No
  Sender: FDA-Public Use
  Company Number: US-PFIZER INC-202201138105

PATIENT
  Age: 61 Year
  Sex: Female
  Weight: 72.12 kg

DRUGS (8)
  1. AMLODIPINE BESYLATE [Suspect]
     Active Substance: AMLODIPINE BESYLATE
     Indication: Blood pressure measurement
     Dosage: 10 MG(10MG TABLETS, QUANTITY 90)
     Dates: start: 20220722, end: 20220902
  2. ASPIRIN [Concomitant]
     Active Substance: ASPIRIN
     Indication: Hypertension
     Dosage: 81 MG, DAILY(81MG TABLET, TAKES HALF TABLET BY MOUTH, DAILY)
     Route: 048
  3. POTASSIUM CHLORIDE [Concomitant]
     Active Substance: POTASSIUM CHLORIDE
     Indication: Hypertension
     Dosage: 20 MEQ, DAILY (20MEG TABLET, BY MOUTH, EVERY DAY)
     Route: 048
     Dates: start: 20220722
  4. HYDRALAZINE [Concomitant]
     Active Substance: HYDRALAZINE HYDROCHLORIDE
     Indication: Hypertension
     Dosage: 100 MG, 3X/DAY(100MG TABLET, 3 TIMES A DAY)
     Dates: start: 20220722
  5. LOSARTAN POTASSIUM [Concomitant]
     Active Substance: LOSARTAN POTASSIUM
     Indication: Hypertension
     Dosage: 100 MG(100MG BY MOUTH)
     Route: 048
     Dates: start: 20220729
  6. CHLORTHALIDONE [Concomitant]
     Active Substance: CHLORTHALIDONE
     Indication: Hypertension
     Dosage: 25 MG, 1X/DAY (TAKES IN MORNING, TAKES HALF)
     Dates: start: 20220722
  7. ATORVASTATIN [Concomitant]
     Active Substance: ATORVASTATIN
     Indication: Blood cholesterol
     Dosage: 20 MG(20MG TABLET)
  8. LISINOPRIL [Concomitant]
     Active Substance: LISINOPRIL
     Dosage: DRUG DISCONTINUED

REACTIONS (1)
  - Gingival swelling [Recovering/Resolving]
